FAERS Safety Report 6194020-7 (Version None)
Quarter: 2009Q2

REPORT INFORMATION
  Report Type: 
  Country: None (occurrence: None)
  Receive Date: 20090518
  Receipt Date: 20090511
  Transmission Date: 20091009
  Serious: No
  Sender: FDA-Public Use
  Company Number: US-B.I. PHARMACEUTICALS,INC./RIDGEFIELD-2009-BP-05944BP

PATIENT
  Sex: Female

DRUGS (4)
  1. ZANTAC 150 [Suspect]
     Indication: GASTROOESOPHAGEAL REFLUX DISEASE
     Route: 048
  2. ZANTAC 150 [Suspect]
     Indication: ABDOMINAL PAIN UPPER
  3. NADOLOL [Concomitant]
     Indication: HYPERTENSION
  4. ALPRAZOLAM [Concomitant]
     Indication: DEPRESSION

REACTIONS (1)
  - FAECES DISCOLOURED [None]
